FAERS Safety Report 16442784 (Version 2)
Quarter: 2019Q4

REPORT INFORMATION
  Report Type: Spontaneous
  Country: US (occurrence: US)
  Receive Date: 20190617
  Receipt Date: 20191202
  Transmission Date: 20200122
  Serious: Yes (Hospitalization, Other)
  Sender: FDA-Public Use
  Company Number: US-ELI_LILLY_AND_COMPANY-US201906005054

PATIENT
  Age: 53 Year
  Sex: Male

DRUGS (9)
  1. TRESIBA [Concomitant]
     Active Substance: INSULIN DEGLUDEC
     Indication: PRODUCT USED FOR UNKNOWN INDICATION
     Dosage: 60 U, EACH MORNING
     Route: 065
     Dates: start: 201801
  2. GLIPIZIDE. [Concomitant]
     Active Substance: GLIPIZIDE
     Indication: PRODUCT USED FOR UNKNOWN INDICATION
     Dosage: 10 MG, BID
  3. LANTUS [Concomitant]
     Active Substance: INSULIN GLARGINE
     Indication: PRODUCT USED FOR UNKNOWN INDICATION
     Dosage: UNK UNK, DAILY
  4. BASAGLAR [Concomitant]
     Active Substance: INSULIN GLARGINE
     Indication: PRODUCT USED FOR UNKNOWN INDICATION
     Dosage: UNK, UNKNOWN
     Route: 065
     Dates: start: 20190610
  5. GLIPIZIDE. [Concomitant]
     Active Substance: GLIPIZIDE
     Dosage: UNK UNK, DAILY
  6. HUMALOG [Suspect]
     Active Substance: INSULIN LISPRO
     Dosage: 2-3 U, MORE IF GLUCOSE IS OVER 200, BID
     Route: 058
  7. HUMALOG [Suspect]
     Active Substance: INSULIN LISPRO
     Dosage: UNK UNK, UNKNOWN
     Route: 058
  8. METFORMIN [Concomitant]
     Active Substance: METFORMIN HYDROCHLORIDE
     Indication: PRODUCT USED FOR UNKNOWN INDICATION
     Dosage: 1000 MG, BID
  9. HUMALOG [Suspect]
     Active Substance: INSULIN LISPRO
     Indication: TYPE 2 DIABETES MELLITUS
     Dosage: 20 U,BID, IF SUGAR BETWEEN 130-200
     Route: 058
     Dates: start: 2015, end: 201904

REACTIONS (17)
  - Transplant failure [Unknown]
  - Visual impairment [Unknown]
  - Nerve injury [Unknown]
  - Chest pain [Not Recovered/Not Resolved]
  - Blood glucose increased [Unknown]
  - Myocardial infarction [Unknown]
  - Blood glucose fluctuation [Unknown]
  - Appetite disorder [Unknown]
  - Drain site complication [Unknown]
  - Procedural complication [Unknown]
  - Infection [Unknown]
  - Malaise [Unknown]
  - Thrombosis [Unknown]
  - Ulcer [Unknown]
  - Intentional product misuse [Unknown]
  - Cyst [Unknown]
  - Glycosylated haemoglobin increased [Unknown]

NARRATIVE: CASE EVENT DATE: 201906
